FAERS Safety Report 9144978 (Version 3)
Quarter: 2013Q3

REPORT INFORMATION
  Report Type: Spontaneous
  Country: US (occurrence: US)
  Receive Date: 20130307
  Receipt Date: 20130806
  Transmission Date: 20140515
  Serious: Yes (Hospitalization)
  Sender: FDA-Public Use
  Company Number: US-BIOGENIDEC-2013BI018980

PATIENT
  Age: 44 Year
  Sex: Male

DRUGS (3)
  1. TYSABRI [Suspect]
     Indication: MULTIPLE SCLEROSIS
     Route: 042
     Dates: start: 20080130, end: 20081218
  2. TYSABRI [Suspect]
     Indication: MULTIPLE SCLEROSIS
     Route: 042
     Dates: start: 20120530, end: 201302
  3. AVONEX [Concomitant]
     Indication: MULTIPLE SCLEROSIS
     Route: 030
     Dates: start: 20010425

REACTIONS (3)
  - Intervertebral disc protrusion [Recovered/Resolved]
  - Neck pain [Recovered/Resolved]
  - Paraesthesia [Recovered/Resolved]
